FAERS Safety Report 9774193 (Version 1)
Quarter: 2013Q4

REPORT INFORMATION
  Report Type: Spontaneous
  Country: US (occurrence: US)
  Receive Date: 20131220
  Receipt Date: 20131220
  Transmission Date: 20140711
  Serious: Yes (Other)
  Sender: FDA-Public Use
  Company Number: US-ROCHE-1322483

PATIENT
  Age: 44 Year
  Sex: Male

DRUGS (3)
  1. XELODA [Suspect]
     Indication: GASTROOESOPHAGEAL CANCER
     Route: 065
     Dates: start: 20131107
  2. EPIRUBICIN [Concomitant]
     Indication: GASTROOESOPHAGEAL CANCER
     Route: 065
     Dates: start: 20131107
  3. OXALIPLATIN [Concomitant]
     Indication: GASTROOESOPHAGEAL CANCER
     Route: 065
     Dates: start: 20131107

REACTIONS (2)
  - Tumour haemorrhage [Unknown]
  - Dysphagia [Not Recovered/Not Resolved]
